FAERS Safety Report 19706629 (Version 1)
Quarter: 2021Q3

REPORT INFORMATION
  Report Type: Spontaneous
  Country: US (occurrence: US)
  Receive Date: 20210817
  Receipt Date: 20210817
  Transmission Date: 20211014
  Serious: No
  Sender: FDA-Public Use
  Company Number: US-GLAXOSMITHKLINE-USCH2021AMR054214

PATIENT
  Age: 51 Year
  Sex: Male

DRUGS (4)
  1. IBUPROFEN. [Suspect]
     Active Substance: IBUPROFEN
     Indication: DENTAL IMPLANTATION
     Dosage: UNK
     Dates: start: 202107
  2. SHINGRIX [Suspect]
     Active Substance: RECOMBINANT VARICELLA ZOSTER VIRUS (VZV) GLYCOPROTEIN E
     Indication: PROPHYLAXIS
     Dosage: UNK
     Dates: start: 20210804
  3. CODEINE [Suspect]
     Active Substance: CODEINE
     Indication: DENTAL IMPLANTATION
     Dosage: UNK
     Dates: start: 202107
  4. TYLENOL [Suspect]
     Active Substance: ACETAMINOPHEN
     Indication: DENTAL IMPLANTATION
     Dosage: UNK
     Dates: start: 202107

REACTIONS (7)
  - Impaired work ability [Unknown]
  - Migraine [Unknown]
  - Feeling abnormal [Unknown]
  - Fatigue [Unknown]
  - Hypoaesthesia oral [Not Recovered/Not Resolved]
  - Product administration interrupted [Unknown]
  - Therapeutic response unexpected [Unknown]

NARRATIVE: CASE EVENT DATE: 202108
